FAERS Safety Report 20227120 (Version 1)
Quarter: 2021Q4

REPORT INFORMATION
  Report Type: Report from Study
  Country: US (occurrence: US)
  Receive Date: 20211224
  Receipt Date: 20211224
  Transmission Date: 20220303
  Serious: Yes (Other)
  Sender: FDA-Public Use
  Company Number: US-PHARMACOVIGILANCE-US-KAD-21-00316

PATIENT
  Age: 49 Year
  Sex: Female

DRUGS (1)
  1. REZUROCK [Suspect]
     Active Substance: BELUMOSUDIL
     Indication: Product used for unknown indication
     Dosage: 200 MILLIGRAM
     Dates: start: 202109

REACTIONS (6)
  - Fractured coccyx [Unknown]
  - Abdominal pain [Unknown]
  - Fall [Unknown]
  - Lip dry [Unknown]
  - Chapped lips [Unknown]
  - Stomatitis [Unknown]

NARRATIVE: CASE EVENT DATE: 20211101
